FAERS Safety Report 4566468-5 (Version None)
Quarter: 2005Q1

REPORT INFORMATION
  Report Type: 
  Country: None (occurrence: None)
  Receive Date: 20050127
  Receipt Date: 20050127
  Transmission Date: 20050727
  Serious: Yes (Life-Threatening, Hospitalization)
  Sender: FDA-Public Use
  Company Number: None

PATIENT
  Age: 1 Day
  Sex: Male
  Weight: 3.6288 kg

DRUGS (1)
  1. FRAGMIN [Suspect]
     Dosage: DAILY  SUBCUTANEOUS
     Route: 058
     Dates: start: 20040101, end: 20040618

REACTIONS (5)
  - ACIDOSIS [None]
  - CONTRAINDICATION TO MEDICAL TREATMENT [None]
  - MATERNAL DRUGS AFFECTING FOETUS [None]
  - MEDICATION ERROR [None]
  - THERAPEUTIC AGENT TOXICITY [None]
